FAERS Safety Report 17139346 (Version 1)
Quarter: 2019Q4

REPORT INFORMATION
  Report Type: Spontaneous
  Country: SE (occurrence: SE)
  Receive Date: 20191211
  Receipt Date: 20191211
  Transmission Date: 20200122
  Serious: Yes (Hospitalization)
  Sender: FDA-Public Use
  Company Number: SE-TEVA-2019-SE-1148916

PATIENT
  Age: 75 Year
  Sex: Female

DRUGS (4)
  1. IMOVANE [Suspect]
     Active Substance: ZOPICLONE
     Dosage: 15 MG
     Route: 048
     Dates: start: 20180403, end: 20180403
  2. PROPAVAN [Suspect]
     Active Substance: PROPIOMAZINE
     Dosage: 250 MG
     Route: 048
     Dates: start: 20180403, end: 20180403
  3. ZOLPIDEM [Suspect]
     Active Substance: ZOLPIDEM TARTRATE
     Dosage: 80 MG
     Route: 048
     Dates: start: 20180403, end: 20180403
  4. LERGIGAN (PROMETHAZINE HYDROCHLORIDE) [Suspect]
     Active Substance: PROMETHAZINE HYDROCHLORIDE
     Dosage: UNKNOWN DOSE
     Route: 048
     Dates: start: 20180403, end: 20180403

REACTIONS (3)
  - Intentional overdose [Unknown]
  - Intentional self-injury [Unknown]
  - Tachycardia [Unknown]

NARRATIVE: CASE EVENT DATE: 20180403
